FAERS Safety Report 11368216 (Version 1)
Quarter: 2015Q3

REPORT INFORMATION
  Report Type: Spontaneous
  Country: US (occurrence: US)
  Receive Date: 20150811
  Receipt Date: 20150811
  Transmission Date: 20151125
  Serious: No
  Sender: FDA-Public Use
  Company Number: US-ELI_LILLY_AND_COMPANY-US201403005478

PATIENT
  Sex: Male

DRUGS (3)
  1. AXIRON [Suspect]
     Active Substance: TESTOSTERONE
     Indication: BLOOD TESTOSTERONE DECREASED
     Dosage: 90 MG, UNK
     Route: 061
     Dates: start: 201303
  2. CIALIS [Concomitant]
     Active Substance: TADALAFIL
     Dosage: UNK, PRN
  3. PREVACID [Concomitant]
     Active Substance: LANSOPRAZOLE

REACTIONS (3)
  - Incorrect route of drug administration [Unknown]
  - Incorrect dose administered [Unknown]
  - Drug dose omission [Unknown]
